FAERS Safety Report 19902754 (Version 1)
Quarter: 2021Q4

REPORT INFORMATION
  Report Type: Spontaneous
  Country: IT (occurrence: IT)
  Receive Date: 20211001
  Receipt Date: 20211001
  Transmission Date: 20220303
  Serious: Yes (Hospitalization)
  Sender: FDA-Public Use
  Company Number: IT-ABBVIE-21K-083-4097066-00

PATIENT
  Age: 7 Year
  Sex: Male
  Weight: 34 kg

DRUGS (3)
  1. VALPROATE SODIUM [Suspect]
     Active Substance: VALPROATE SODIUM
     Indication: Epileptic encephalopathy
     Route: 065
     Dates: start: 20180101, end: 20180902
  2. CLOBAZAM [Suspect]
     Active Substance: CLOBAZAM
     Indication: Epileptic encephalopathy
     Route: 065
     Dates: start: 20180101, end: 20180907
  3. DIACOMIT [Suspect]
     Active Substance: STIRIPENTOL
     Indication: Epileptic encephalopathy
     Route: 065
     Dates: start: 20180101, end: 20180907

REACTIONS (2)
  - Psychomotor retardation [Unknown]
  - Muscle rigidity [Unknown]

NARRATIVE: CASE EVENT DATE: 20180906
